FAERS Safety Report 19601764 (Version 1)
Quarter: 2021Q3

REPORT INFORMATION
  Report Type: Spontaneous
  Country: FR (occurrence: FR)
  Receive Date: 20210723
  Receipt Date: 20210723
  Transmission Date: 20211014
  Serious: Yes (Disabling)
  Sender: FDA-Public Use
  Company Number: FR-TEVA-2021-FR-1934537

PATIENT
  Age: 31 Year
  Sex: Male
  Weight: 86 kg

DRUGS (7)
  1. PRAZEPAM [Suspect]
     Active Substance: PRAZEPAM
     Indication: PRODUCT USED FOR UNKNOWN INDICATION
     Dosage: 40MG,THERAPY START DATE NASK, THERAPY END DATE NASK
     Route: 048
  2. ALIMEMAZINE [Suspect]
     Active Substance: TRIMEPRAZINE
     Indication: PRODUCT USED FOR UNKNOWN INDICATION
     Dosage: 20MG,THERAPY START DATE NASK, THERAPY END DATE NASK
     Route: 048
  3. LOXAPINE (SUCCINATE DE) [Suspect]
     Active Substance: LOXAPINE SUCCINATE
     Dosage: THERAPY START DATE NASK, THERAPY END DATE NASK
     Route: 065
  4. CYAMEMAZINE [Suspect]
     Active Substance: CYAMEMAZINE
     Dosage: THERAPY START DATE NASK, THERAPY END DATE NASK
     Route: 065
  5. OXAZEPAM. [Suspect]
     Active Substance: OXAZEPAM
     Dosage: THERAPY START DATE NASK, THERAPY END DATE NASK
     Route: 065
  6. METHADONE [Suspect]
     Active Substance: METHADONE HYDROCHLORIDE
     Indication: DRUG WITHDRAWAL MAINTENANCE THERAPY
     Dosage: 60MG,THERAPY START DATE NASK, THERAPY END DATE NASK
     Route: 048
  7. ZOLPIDEM [Suspect]
     Active Substance: ZOLPIDEM TARTRATE
     Dosage: THERAPY START DATE NASK, THERAPY END DATE NASK
     Route: 065

REACTIONS (2)
  - Bladder dilatation [Recovered/Resolved]
  - Malaise [Recovered/Resolved]

NARRATIVE: CASE EVENT DATE: 20210701
